FAERS Safety Report 7281797-2 (Version None)
Quarter: 2011Q1

REPORT INFORMATION
  Report Type: 
  Country: None (occurrence: None)
  Receive Date: 20110208
  Receipt Date: 20100325
  Transmission Date: 20110831
  Serious: Yes (Other)
  Sender: FDA-Public Use
  Company Number: US-PFIZER INC-2010039078

PATIENT

DRUGS (1)
  1. SUTENT [Suspect]
     Dosage: 50 MG, UNK

REACTIONS (1)
  - BLOOD CREATINE ABNORMAL [None]
